FAERS Safety Report 8463112-1 (Version None)
Quarter: 2012Q2

REPORT INFORMATION
  Report Type: 
  Country: None (occurrence: None)
  Receive Date: 20120323
  Receipt Date: 20110919
  Transmission Date: 20120825
  Serious: Yes (Hospitalization, Other)
  Sender: FDA-Public Use
  Company Number: 163-21880-11090061

PATIENT
  Age: 77 Year
  Sex: Female

DRUGS (26)
  1. REVLIMID [Suspect]
     Dosage: 10 MG, 1 IN 1 D, PO
     Dates: start: 20101010
  2. ACTOS [Concomitant]
  3. CYMBALTA [Concomitant]
  4. LISINOPRIL [Concomitant]
  5. ALLOPURINOL [Concomitant]
  6. MAGNESIUM OXIDE (MAGNESIUM OXIDE) (CAPSULES) [Concomitant]
  7. MEGACE (MEGESTROL ACETATE) (SUSPENSION) [Concomitant]
  8. SYNTHROID [Concomitant]
  9. GABAPENTIN (GABAPENTIN) (CAPSULES) [Concomitant]
  10. LAXATIVE (SENNOSIDE A+B) (PILL) [Concomitant]
  11. NITROGLYCERINE (GLYCERYL TRINITRATE) (UNKNOWN) [Concomitant]
  12. SLOW-MAG (MAGNESIUM CHLORIDE ANHYROUS) [Concomitant]
  13. LIPITOR [Concomitant]
  14. LOPRESSOR [Concomitant]
  15. LEVAQUIN [Concomitant]
  16. OXYBUTYNIN (OXYBUTYNIN) (UNKNOWN) [Concomitant]
  17. METOPROLOL TARTRATE (METOPROLOL TARTRATE) (TABLETS) [Concomitant]
  18. ERGOCALCIFEROL (ERGOCALCIFEROL) (CAPSULES) [Concomitant]
  19. SIMVASTATIN [Concomitant]
  20. POTASSIUM (POTASSIUM) (UNKNOWN) [Concomitant]
  21. NORVASC [Concomitant]
  22. POLIC ACID (POLIC ACID) (TABLETS) [Concomitant]
  23. ONDANSETRON HCL (ONDANSETRON HYDROCHLORIDE) (TABLETS) [Concomitant]
  24. K-LOR (POTASSIUM CHLORIDE) (TABLETS) [Concomitant]
  25. PERCOCET [Concomitant]
  26. VALIUM [Concomitant]

REACTIONS (2)
  - DIVERTICULITIS [None]
  - FEMALE GENITAL TRACT FISTULA [None]
